FAERS Safety Report 10495269 (Version 1)
Quarter: 2014Q4

REPORT INFORMATION
  Report Type: Spontaneous
  Country: DE (occurrence: DE)
  Receive Date: 20141003
  Receipt Date: 20141003
  Transmission Date: 20150528
  Serious: Yes (Hospitalization, Other)
  Sender: FDA-Public Use
  Company Number: DE-PFIZER INC-2014268870

PATIENT
  Sex: Female

DRUGS (4)
  1. INSULIN [Concomitant]
     Active Substance: INSULIN NOS
     Indication: GESTATIONAL DIABETES
     Dosage: 40 IU, DAILY, 29.1. - 35.6. GESTATIONAL WEEK
     Route: 064
     Dates: start: 20130615, end: 20130801
  2. RISPERIDONE. [Suspect]
     Active Substance: RISPERIDONE
     Indication: DEPRESSION
     Dosage: 4 MG, 1X/DAY, 0. - 23.1. GESTATIONAL WEEK
     Route: 064
     Dates: start: 20121123
  3. VENLAFAXINE HCL [Suspect]
     Active Substance: VENLAFAXINE HYDROCHLORIDE
     Dosage: 225 MG, DAILY, 0. - 35.6. GESTATIONAL WEEK
     Route: 064
  4. VENLAFAXINE HCL [Suspect]
     Active Substance: VENLAFAXINE HYDROCHLORIDE
     Indication: DEPRESSION
     Dosage: 250 MG, DAILY
     Route: 064
     Dates: start: 20121123

REACTIONS (9)
  - Large for dates baby [Unknown]
  - Neonatal tachypnoea [Recovered/Resolved]
  - Agitation [Unknown]
  - Generalised tonic-clonic seizure [Unknown]
  - Premature baby [Unknown]
  - Foetal exposure during pregnancy [Unknown]
  - Hyperbilirubinaemia neonatal [Recovered/Resolved]
  - Drug withdrawal syndrome [Recovered/Resolved]
  - Tachycardia [Unknown]

NARRATIVE: CASE EVENT DATE: 201308
